FAERS Safety Report 6149138-1 (Version None)
Quarter: 2009Q2

REPORT INFORMATION
  Report Type: 
  Country: None (occurrence: None)
  Receive Date: 20090409
  Receipt Date: 20090403
  Transmission Date: 20091009
  Serious: Yes (Other)
  Sender: FDA-Public Use
  Company Number: US-ASTRAZENECA-2009UW08530

PATIENT
  Age: 64 Year
  Sex: Male
  Weight: 105.2 kg

DRUGS (9)
  1. PRILOSEC [Suspect]
     Indication: GASTROOESOPHAGEAL REFLUX DISEASE
     Dosage: DAILY
     Route: 048
     Dates: start: 20010401
  2. PLAVIX [Concomitant]
  3. ASPIRIN [Concomitant]
  4. CRESTOR [Concomitant]
  5. ALLOPURINOL [Concomitant]
  6. CHOLICHINE [Concomitant]
  7. METOPROLOL [Concomitant]
  8. ENALAPRIL [Concomitant]
  9. LEVITRA [Concomitant]

REACTIONS (2)
  - BARRETT'S OESOPHAGUS [None]
  - PULMONARY CONGESTION [None]
